FAERS Safety Report 9209432 (Version 1)
Quarter: 2013Q1

REPORT INFORMATION
  Report Type: Spontaneous
  Country: US (occurrence: None)
  Receive Date: 20120726
  Receipt Date: 20120726
  Transmission Date: 20140127
  Serious: Yes (Other)
  Sender: FDA-Public Use
  Company Number: AUR-APL-2012-02627

PATIENT
  Sex: Male

DRUGS (4)
  1. VENLAFAXINE (VENLAFAXINE) [Suspect]
     Dosage: (75 MG, 2 IN 1D)
     Dates: start: 2012, end: 2012
  2. VENLAFAXINE (VENLAFAXINE) [Suspect]
     Indication: ANXIETY
     Dosage: (75 MG, 2 IN 1D)
     Dates: start: 2012, end: 2012
  3. EFFEXOR XR (VENLAFAXINE HYDROCHLORIDE) (75 MILLIGRAM, CAPSULE) (VENLAFAXINE HYDROCHLORIDE) [Suspect]
     Dates: start: 2012, end: 2012
  4. EFFEXOR XR (VENLAFAXINE HYDROCHLORIDE) (75 MILLIGRAM, CAPSULE) (VENLAFAXINE HYDROCHLORIDE) [Suspect]
     Dates: start: 2012, end: 2012

REACTIONS (1)
  - Urinary retention [None]
